FAERS Safety Report 21895093 (Version 1)
Quarter: 2023Q1

REPORT INFORMATION
  Report Type: Spontaneous
  Country: US (occurrence: US)
  Receive Date: 20230122
  Receipt Date: 20230122
  Transmission Date: 20230417
  Serious: Yes (Death)
  Sender: FDA-Public Use
  Company Number: US-MALLINCKRODT-T202300380

PATIENT
  Sex: Female
  Weight: 91 kg

DRUGS (1)
  1. H.P. ACTHAR [Suspect]
     Active Substance: CORTICOTROPIN
     Indication: Sarcoidosis
     Dosage: 0.5 MILLILITER (40 UNITS), TWICE A WEEK
     Route: 058
     Dates: start: 202209

REACTIONS (1)
  - Death [Fatal]
